FAERS Safety Report 7791383-3 (Version None)
Quarter: 2011Q4

REPORT INFORMATION
  Report Type: 
  Country: None (occurrence: None)
  Receive Date: 20111003
  Receipt Date: 20110921
  Transmission Date: 20120403
  Serious: Yes (Other)
  Sender: FDA-Public Use
  Company Number: US-ELI_LILLY_AND_COMPANY-US201109007086

PATIENT
  Age: 45 Year
  Sex: Female

DRUGS (3)
  1. PROZAC [Suspect]
     Dosage: UNK UNK, UNKNOWN
  2. CYMBALTA [Suspect]
     Indication: DEPRESSION
     Dosage: 30 MG, QD
     Dates: start: 20110901, end: 20110901
  3. PROZAC [Suspect]
     Dosage: UNK, UNKNOWN
     Dates: start: 20110901, end: 20110901

REACTIONS (3)
  - BRAIN NEOPLASM [None]
  - CONVULSION [None]
  - DRUG INEFFECTIVE [None]
